FAERS Safety Report 8524636-1 (Version None)
Quarter: 2012Q3

REPORT INFORMATION
  Report Type: 
  Country: None (occurrence: None)
  Receive Date: 20120720
  Receipt Date: 20120713
  Transmission Date: 20120928
  Serious: No
  Sender: FDA-Public Use
  Company Number: US-009507513-1207USA004549

PATIENT

DRUGS (3)
  1. SAPHRIS [Suspect]
     Indication: MAJOR DEPRESSION
     Dosage: 5 MG, BID
     Route: 060
  2. SAPHRIS [Suspect]
     Indication: PSYCHOTIC DISORDER
  3. RISPERIDONE [Concomitant]
     Dosage: UNK

REACTIONS (2)
  - ACTIVATION SYNDROME [None]
  - RESTLESSNESS [None]
